FAERS Safety Report 8260971-2 (Version None)
Quarter: 2012Q2

REPORT INFORMATION
  Report Type: 
  Country: None (occurrence: None)
  Receive Date: 20120405
  Receipt Date: 20120329
  Transmission Date: 20120825
  Serious: Yes (Other)
  Sender: FDA-Public Use
  Company Number: US-PFIZER INC-2011117327

PATIENT
  Sex: Male

DRUGS (10)
  1. DILANTIN [Suspect]
     Dosage: 150 MG, 2X/DAY
     Route: 048
     Dates: start: 20100823, end: 20110120
  2. SINGULAIR [Concomitant]
     Dosage: 5 MG, UNK
  3. PRAZOSIN [Concomitant]
     Dosage: 100MCG, TWICE A DAY
  4. ALBUTEROL [Concomitant]
     Dosage: 2.5 MG, EVERY FOUR HOURS
  5. ARANESP [Concomitant]
     Dosage: 60 MG, UNK
  6. DILANTIN [Suspect]
     Indication: CONVULSION
     Dosage: UNK
     Route: 048
     Dates: start: 20100701
  7. PHENYTOIN SODIUM [Suspect]
     Indication: CONVULSION
     Dosage: 172 MG, UNK
     Route: 042
     Dates: start: 20100810, end: 20110107
  8. MIRALAX [Concomitant]
     Dosage: UNK
  9. AZITHROMYCIN [Concomitant]
     Dosage: UNK
     Route: 048
  10. NEPHRO-VITE [Concomitant]
     Dosage: ONE TABLET A DAY

REACTIONS (1)
  - STEVENS-JOHNSON SYNDROME [None]
